FAERS Safety Report 19415409 (Version 1)
Quarter: 2021Q2

REPORT INFORMATION
  Report Type: Spontaneous
  Country: US (occurrence: US)
  Receive Date: 20210614
  Receipt Date: 20210614
  Transmission Date: 20210717
  Serious: Yes (Death)
  Sender: FDA-Public Use
  Company Number: None

PATIENT
  Age: 62 Year
  Sex: Male

DRUGS (3)
  1. TEMOZOLOMIDE. [Suspect]
     Active Substance: TEMOZOLOMIDE
     Indication: ESSENTIAL HYPERTENSION
     Route: 048
     Dates: start: 20210331
  2. DEXAMETHSONE 40MG [Concomitant]
  3. TEMOZOLOMIDE. [Suspect]
     Active Substance: TEMOZOLOMIDE
     Indication: ESSENTIAL HYPERTENSION
     Route: 048
     Dates: start: 20210331

REACTIONS (1)
  - Death [None]

NARRATIVE: CASE EVENT DATE: 20210520
